FAERS Safety Report 5466141-5 (Version None)
Quarter: 2007Q3

REPORT INFORMATION
  Report Type: 
  Country: None (occurrence: None)
  Receive Date: 20070924
  Receipt Date: 20070913
  Transmission Date: 20080115
  Serious: Yes (Hospitalization)
  Sender: FDA-Public Use
  Company Number: JP-AMGEN-US208596

PATIENT
  Sex: Female
  Weight: 73 kg

DRUGS (12)
  1. ENBREL [Suspect]
     Indication: RHEUMATOID ARTHRITIS
     Route: 058
     Dates: start: 20060404, end: 20060919
  2. MAGNESIUM OXIDE [Concomitant]
     Route: 048
     Dates: start: 20060101
  3. URSO 250 [Concomitant]
     Dosage: 300 MG EVERY 1 CYC
     Route: 048
     Dates: start: 20060101
  4. OMEPRAL [Concomitant]
     Route: 048
     Dates: start: 20060101
  5. ISCOTIN [Concomitant]
     Indication: ANTIBIOTIC PROPHYLAXIS
     Dosage: 300 MG; UNSPECIFIED FREQUENCY
     Dates: start: 20060401
  6. BAKTAR [Concomitant]
     Dosage: UNKNOWN
     Route: 048
  7. ALFACALCIDOL [Concomitant]
     Route: 048
     Dates: start: 20060101
  8. BONALON [Concomitant]
     Route: 048
     Dates: start: 20060101
  9. RINDERON [Concomitant]
     Indication: RHEUMATOID ARTHRITIS
     Route: 048
     Dates: start: 20060101
  10. ETODOLAC [Concomitant]
     Indication: RHEUMATOID ARTHRITIS
     Route: 048
     Dates: start: 20060101
  11. VOLTAREN [Concomitant]
     Dosage: UNKNOWN
     Route: 048
  12. VITAMEDIN [Concomitant]
     Dosage: UNKNOWN
     Route: 048

REACTIONS (1)
  - VASCULITIS [None]
